FAERS Safety Report 22027125 (Version 1)
Quarter: 2023Q1

REPORT INFORMATION
  Report Type: Spontaneous
  Country: US (occurrence: None)
  Receive Date: 20230223
  Receipt Date: 20230223
  Transmission Date: 20230417
  Serious: No
  Sender: FDA-Public Use
  Company Number: US-ROCHE-3215198

PATIENT
  Sex: Female

DRUGS (1)
  1. XOLAIR [Suspect]
     Active Substance: OMALIZUMAB
     Indication: Asthma
     Route: 058
     Dates: start: 20191018

REACTIONS (3)
  - Gastrointestinal disorder [Recovered/Resolved]
  - Ill-defined disorder [Recovered/Resolved]
  - Pharyngeal disorder [Recovered/Resolved]
